FAERS Safety Report 7530755-9 (Version None)
Quarter: 2011Q2

REPORT INFORMATION
  Report Type: 
  Country: None (occurrence: None)
  Receive Date: 20110607
  Receipt Date: 20070907
  Transmission Date: 20111010
  Serious: Yes (Other)
  Sender: FDA-Public Use
  Company Number: CA-GENENTECH-319900

PATIENT
  Sex: Female
  Weight: 48 kg

DRUGS (3)
  1. XOLAIR [Suspect]
     Indication: ASTHMA
     Dosage: 300 MG, UNK
     Route: 058
     Dates: start: 20070220
  2. SYMBICORT [Concomitant]
     Indication: PRODUCT USED FOR UNKNOWN INDICATION
  3. VENTOLIN [Concomitant]
     Indication: PRODUCT USED FOR UNKNOWN INDICATION

REACTIONS (16)
  - COUGH [None]
  - OROPHARYNGEAL PAIN [None]
  - ASTHMA [None]
  - PRODUCTIVE COUGH [None]
  - DYSPHONIA [None]
  - CHEST DISCOMFORT [None]
  - LARYNGITIS [None]
  - WHEEZING [None]
  - NASAL CYST [None]
  - DYSPNOEA [None]
  - SINUS HEADACHE [None]
  - NASAL CONGESTION [None]
  - APHONIA [None]
  - PULMONARY CONGESTION [None]
  - RHONCHI [None]
  - LUNG DISORDER [None]
